FAERS Safety Report 7996129-1 (Version None)
Quarter: 2011Q4

REPORT INFORMATION
  Report Type: 
  Country: None (occurrence: None)
  Receive Date: 20111220
  Receipt Date: 20111213
  Transmission Date: 20120403
  Serious: Yes (Death, Life-Threatening, Other)
  Sender: FDA-Public Use
  Company Number: PHHY2011FR108801

PATIENT
  Sex: Female

DRUGS (8)
  1. SYMBICORT [Concomitant]
  2. IMOVANE [Concomitant]
  3. ACETAMINOPHEN [Suspect]
  4. PRIMPERAN TAB [Concomitant]
  5. LASIX [Concomitant]
  6. VALSARTAN  AND HYDROCHLOROTHIAZIDE [Suspect]
     Dosage: 1 DF (VALS 80 MG, HYDR 12.5 MG), QD
     Dates: start: 20110922, end: 20111004
  7. ONBREZ [Concomitant]
     Dates: start: 20110915, end: 20110922
  8. PANTOPRAZOLE [Concomitant]

REACTIONS (35)
  - LEUKOCYTOCLASTIC VASCULITIS [None]
  - RHEUMATOID FACTOR POSITIVE [None]
  - DIARRHOEA [None]
  - OEDEMA PERIPHERAL [None]
  - DYSPNOEA [None]
  - BUNDLE BRANCH BLOCK RIGHT [None]
  - LYMPHADENOPATHY MEDIASTINAL [None]
  - SKIN OEDEMA [None]
  - ABDOMINAL PAIN UPPER [None]
  - SKIN LESION [None]
  - URTICARIA [None]
  - BLOOD UREA INCREASED [None]
  - PYREXIA [None]
  - LIVEDO RETICULARIS [None]
  - ALPHA 2 GLOBULIN DECREASED [None]
  - BLOOD LACTATE DEHYDROGENASE INCREASED [None]
  - CARDIAC ARREST [None]
  - ARRHYTHMIA [None]
  - EJECTION FRACTION DECREASED [None]
  - VASCULITIS [None]
  - MESENTERIC PANNICULITIS [None]
  - ALPHA 1 GLOBULIN INCREASED [None]
  - NAUSEA [None]
  - PRODUCTIVE COUGH [None]
  - RASH [None]
  - AORTIC VALVE INCOMPETENCE [None]
  - MITRAL VALVE INCOMPETENCE [None]
  - LUNG NEOPLASM [None]
  - RENAL FAILURE [None]
  - RHONCHI [None]
  - CARDIAC FAILURE [None]
  - BLOOD ALBUMIN DECREASED [None]
  - RESPIRATORY DISTRESS [None]
  - CRYOGLOBULINAEMIA [None]
  - EOSINOPHILIA [None]
